FAERS Safety Report 9431776 (Version 1)
Quarter: 2013Q3

REPORT INFORMATION
  Report Type: Spontaneous
  Country: US (occurrence: US)
  Receive Date: 20130731
  Receipt Date: 20130731
  Transmission Date: 20140515
  Serious: No
  Sender: FDA-Public Use
  Company Number: US-B.I. PHARMACEUTICALS,INC./RIDGEFIELD-2013-BI-21882BP

PATIENT
  Sex: Male
  Weight: 84 kg

DRUGS (3)
  1. COMBIVENT [Suspect]
     Indication: ASTHMA
     Dosage: STRENGTH: 20 MCG / 100 MCG;
     Route: 055
     Dates: start: 2013
  2. COMBIVENT [Suspect]
     Indication: ASTHMA
     Dosage: STRENGTH: 18 MCG / 103 MCG;
     Route: 055
     Dates: start: 2008
  3. ADVAIR [Concomitant]
     Indication: ASTHMA
     Dosage: STRENGTH: 250/50 MG; DAILY DOSE: 500/100 MG
     Route: 055

REACTIONS (2)
  - Off label use [Recovered/Resolved]
  - Off label use [Not Recovered/Not Resolved]
